FAERS Safety Report 6935249-7 (Version None)
Quarter: 2010Q3

REPORT INFORMATION
  Report Type: 
  Country: None (occurrence: None)
  Receive Date: 20100822
  Receipt Date: 20100604
  Transmission Date: 20110219
  Serious: No
  Sender: FDA-Public Use
  Company Number: US-ALLERGAN-1007347US

PATIENT
  Age: 76 Year
  Sex: Female

DRUGS (5)
  1. ALPHAGAN P [Suspect]
     Indication: GLAUCOMA
     Dosage: 1 GTT, BID
     Dates: start: 20100526
  2. COMBIGAN [Suspect]
     Indication: GLAUCOMA
     Dosage: 1 GTT, BID
     Dates: start: 20091215
  3. BETAMOL [Concomitant]
  4. CRESTOR [Concomitant]
  5. SYNTHROID [Concomitant]
     Indication: HYPOTHYROIDISM

REACTIONS (3)
  - HEADACHE [None]
  - MUSCULAR WEAKNESS [None]
  - NAUSEA [None]
